FAERS Safety Report 15264080 (Version 1)
Quarter: 2018Q3

REPORT INFORMATION
  Report Type: Spontaneous
  Country: US (occurrence: US)
  Receive Date: 20180721
  Receipt Date: 20180721
  Transmission Date: 20181010
  Serious: Yes (Disabling)
  Sender: FDA-Public Use
  Company Number: None

PATIENT
  Age: 58 Year
  Sex: Female
  Weight: 81 kg

DRUGS (6)
  1. LIPITOR [Concomitant]
     Active Substance: ATORVASTATIN CALCIUM
  2. GENTAMICIN. [Suspect]
     Active Substance: GENTAMICIN
  3. METOPROLOL SUCCINATE. [Concomitant]
     Active Substance: METOPROLOL SUCCINATE
  4. LEXAPRO [Concomitant]
     Active Substance: ESCITALOPRAM OXALATE
  5. BENADRYL [Concomitant]
     Active Substance: DIPHENHYDRAMINE HYDROCHLORIDE
  6. B12 INJECTIONS [Concomitant]

REACTIONS (6)
  - Renal failure [None]
  - Visual impairment [None]
  - Neuropathy peripheral [None]
  - Toxicity to various agents [None]
  - Deafness [None]
  - Ataxia [None]

NARRATIVE: CASE EVENT DATE: 20160417
